FAERS Safety Report 7457513-8 (Version None)
Quarter: 2011Q2

REPORT INFORMATION
  Report Type: 
  Country: None (occurrence: None)
  Receive Date: 20110504
  Receipt Date: 20110425
  Transmission Date: 20111010
  Serious: Yes (Death)
  Sender: FDA-Public Use
  Company Number: US-AMGEN-USASP2011021684

PATIENT
  Sex: Female

DRUGS (3)
  1. ENBREL [Suspect]
     Indication: RHEUMATOID ARTHRITIS
     Dosage: UNK
  2. NEUPOGEN [Suspect]
     Indication: BONE MARROW FAILURE
  3. METHOTREXATE [Concomitant]

REACTIONS (1)
  - BONE MARROW FAILURE [None]
